FAERS Safety Report 5833217-X (Version None)
Quarter: 2008Q3

REPORT INFORMATION
  Report Type: 
  Country: None (occurrence: None)
  Receive Date: 20080805
  Receipt Date: 20080725
  Transmission Date: 20090109
  Serious: Yes (Hospitalization)
  Sender: FDA-Public Use
  Company Number: DE-BRISTOL-MYERS SQUIBB COMPANY-14286843

PATIENT
  Age: 47 Year
  Sex: Female

DRUGS (4)
  1. CYCLOPHOSPHAMIDE [Suspect]
     Indication: BREAST CANCER
     Dosage: 2ND CYCLE GIVEN ON 26MAR08
     Dates: start: 20080416, end: 20080416
  2. NEULASTA [Suspect]
     Indication: NEUTROPENIA
     Route: 058
     Dates: start: 20080327, end: 20080417
  3. FLUOROURACIL [Concomitant]
     Dosage: 2ND CYCLE GIVEN ON 26MAR08
     Dates: start: 20080416, end: 20080416
  4. EPIRUBICIN [Concomitant]
     Dosage: 2ND CYCLE GIVEN ON 26MAR08
     Dates: start: 20080416, end: 20080416

REACTIONS (3)
  - HEART RATE INCREASED [None]
  - LEUKOCYTOSIS [None]
  - NAUSEA [None]
